FAERS Safety Report 7688361-1 (Version None)
Quarter: 2011Q3

REPORT INFORMATION
  Report Type: 
  Country: None (occurrence: None)
  Receive Date: 20110817
  Receipt Date: 20110811
  Transmission Date: 20111222
  Serious: Yes (Hospitalization, Disabling)
  Sender: FDA-Public Use
  Company Number: JP-B.I. PHARMACEUTICALS,INC./RIDGEFIELD-2011-BP-10400NB

PATIENT
  Sex: Male
  Weight: 54.6 kg

DRUGS (5)
  1. EPADEL [Concomitant]
     Route: 048
  2. VERAPAMIL HCL [Concomitant]
     Indication: ARRHYTHMIA
     Route: 048
  3. PRADAXA [Suspect]
     Indication: ATRIAL FIBRILLATION
     Dosage: 300 MG
     Route: 048
     Dates: start: 20110403, end: 20110408
  4. LIPITOR [Concomitant]
     Indication: LIPIDS ABNORMAL
     Route: 048
  5. LASIX [Concomitant]
     Route: 048

REACTIONS (4)
  - TUMOUR HAEMORRHAGE [None]
  - HYDROCEPHALUS [None]
  - PNEUMONIA ASPIRATION [None]
  - INTRAVENTRICULAR HAEMORRHAGE [None]
